FAERS Safety Report 6189378-9 (Version None)
Quarter: 2009Q2

REPORT INFORMATION
  Report Type: 
  Country: None (occurrence: None)
  Receive Date: 20090512
  Receipt Date: 20090430
  Transmission Date: 20091009
  Serious: Yes (Other)
  Sender: FDA-Public Use
  Company Number: 09-000695

PATIENT
  Age: 14 Year
  Sex: Female
  Weight: 49.9 kg

DRUGS (2)
  1. LOESTRIN 24 FE (NORETHINDRONE ACETATE, ETHINYL ESTRADIOL, FERROUS FUMA [Suspect]
     Indication: MENORRHAGIA
     Dosage: 20/1000 UG, QD, ORAL
     Route: 048
     Dates: start: 20090422, end: 20090428
  2. IBUPROFEN [Concomitant]

REACTIONS (9)
  - ANOREXIA [None]
  - ARRHYTHMIA [None]
  - CARDIAC MURMUR [None]
  - CHEST DISCOMFORT [None]
  - CHEST PAIN [None]
  - DIZZINESS [None]
  - NAUSEA [None]
  - OEDEMA PERIPHERAL [None]
  - PELVIC PAIN [None]
